FAERS Safety Report 8339556-5 (Version None)
Quarter: 2012Q2

REPORT INFORMATION
  Report Type: 
  Country: None (occurrence: None)
  Receive Date: 20120507
  Receipt Date: 20120430
  Transmission Date: 20120825
  Serious: Yes (Death, Other)
  Sender: FDA-Public Use
  Company Number: CA-GENZYME-CAMP-1002226

PATIENT
  Age: 52 Year
  Sex: Male

DRUGS (2)
  1. SILDENAFIL [Concomitant]
     Indication: PULMONARY HYPERTENSION
     Dosage: UNK
     Route: 065
  2. MABCAMPATH [Suspect]
     Indication: LYMPHOHISTIOCYTOSIS
     Dosage: 30 MG, 3X/W
     Route: 065

REACTIONS (12)
  - KLEBSIELLA INFECTION [None]
  - LYMPHADENITIS BACTERIAL [None]
  - SYSTEMIC CANDIDA [None]
  - RESPIRATORY FAILURE [None]
  - GASTROINTESTINAL HAEMORRHAGE [None]
  - DISSEMINATED INTRAVASCULAR COAGULATION [None]
  - DERMATITIS BULLOUS [None]
  - CYTOMEGALOVIRUS INFECTION [None]
  - EPSTEIN-BARR VIRUS INFECTION [None]
  - CLOSTRIDIUM DIFFICILE COLITIS [None]
  - BLASTOMYCOSIS [None]
  - HISTIOCYTOSIS HAEMATOPHAGIC [None]
